FAERS Safety Report 9672373 (Version 1)
Quarter: 2013Q4

REPORT INFORMATION
  Report Type: Spontaneous
  Country: US (occurrence: US)
  Receive Date: 20131106
  Receipt Date: 20131106
  Transmission Date: 20140711
  Serious: No
  Sender: FDA-Public Use
  Company Number: US-B.I. PHARMACEUTICALS,INC./RIDGEFIELD-2013-BI-34745BP

PATIENT
  Age: 60 Year
  Sex: Male
  Weight: 77 kg

DRUGS (4)
  1. TRADJENTA [Suspect]
     Indication: DIABETES MELLITUS
     Dates: start: 20121115
  2. GLIPIZIDE [Suspect]
     Indication: DIABETES MELLITUS
     Dosage: 2.5 MG
     Dates: start: 20130112
  3. GLIPIZIDE [Suspect]
     Dosage: 5 MG
     Dates: start: 20130116
  4. METFORMIN [Concomitant]
     Dates: start: 20121220, end: 20130110

REACTIONS (3)
  - Blood glucose increased [Unknown]
  - Drug ineffective [Unknown]
  - Infection [Unknown]
